FAERS Safety Report 9303742 (Version 1)
Quarter: 2013Q2

REPORT INFORMATION
  Report Type: Report from Study
  Country: US (occurrence: None)
  Receive Date: 20130520
  Receipt Date: 20130520
  Transmission Date: 20140414
  Serious: Yes (Other)
  Sender: FDA-Public Use
  Company Number: ACO_36126_2013

PATIENT
  Sex: Female
  Weight: 90.7 kg

DRUGS (5)
  1. AMPYRA (DALFAMPRIDINE) TABLET, 10MG [Suspect]
     Indication: PRODUCT USED FOR UNKNOWN INDICATION
     Route: 048
  2. METFORMIN HYDROCHLORIDE (METFORMIN HYDROCHLORIDE) [Concomitant]
  3. ATENOLOL (ATENOLOL) [Concomitant]
  4. DIGOXIN (DIGOXIN) [Concomitant]
  5. VERAPAMIL (VERAPAMIL HYDROCHLORIDE) [Concomitant]

REACTIONS (4)
  - Rotator cuff syndrome [None]
  - Fall [None]
  - Urinary tract infection [None]
  - Rotator cuff syndrome [None]
